FAERS Safety Report 13439508 (Version 1)
Quarter: 2017Q2

REPORT INFORMATION
  Report Type: Spontaneous
  Country: FR (occurrence: FR)
  Receive Date: 20170412
  Receipt Date: 20170412
  Transmission Date: 20170830
  Serious: Yes (Life-Threatening, Hospitalization, Disabling)
  Sender: FDA-Public Use
  Company Number: FR-ROCHE-1918093

PATIENT
  Age: 67 Year
  Sex: Male

DRUGS (13)
  1. MABTHERA [Suspect]
     Active Substance: RITUXIMAB
     Indication: NON-HODGKIN^S LYMPHOMA STAGE IV
     Dosage: SECOND COURSE: 17/MAY/2016, 3RD COURSE: 07/JUN/2016, 4TH COURSE: 28/JUN/2016, 5TH COURSE ON 19/JUL/2
     Route: 058
     Dates: start: 20160517
  2. VINCRISTINE HOSPIRA [Suspect]
     Active Substance: VINCRISTINE
     Indication: NON-HODGKIN^S LYMPHOMA STAGE IV
     Dosage: SECOND COURSE: 17/MAY/2016, 3RD COURSE: 07/JUN/2016, 4TH COURSE: 28/JUN/2016, 5TH COURSE ON 19/JUL/2
     Route: 042
     Dates: start: 20160425, end: 20160809
  3. UROMITEXAN [Concomitant]
     Active Substance: MESNA
     Indication: PREMEDICATION
     Route: 048
  4. ENDOXAN [Suspect]
     Active Substance: CYCLOPHOSPHAMIDE
     Indication: NON-HODGKIN^S LYMPHOMA STAGE IV
     Dosage: SECOND COURSE: 17/MAY/2016, 3RD COURSE: 07/JUN/2016, 4TH COURSE: 28/JUN/2016, 5TH COURSE ON 19/JUL/2
     Route: 042
     Dates: start: 20160425, end: 20160809
  5. ONDANSETRON [Concomitant]
     Active Substance: ONDANSETRON
     Indication: PREMEDICATION
     Route: 042
  6. MABTHERA [Suspect]
     Active Substance: RITUXIMAB
     Dosage: MONOTHERAPY?2ND COURSE OF RITUXIMAB MONOTHERAPY ON 20/SEP/2016?1ST, 2ND AND 3RD COURSE OF RITUXIMAB
     Route: 058
     Dates: start: 20160905
  7. DOLIPRANE [Concomitant]
     Active Substance: ACETAMINOPHEN
     Indication: PREMEDICATION
  8. MABTHERA [Suspect]
     Active Substance: RITUXIMAB
     Indication: NON-HODGKIN^S LYMPHOMA STAGE IV
     Dosage: 1ST COURSE OF R-CHOP
     Route: 042
     Dates: start: 20160425
  9. DOXORUBICIN [Suspect]
     Active Substance: DOXORUBICIN
     Indication: NON-HODGKIN^S LYMPHOMA STAGE IV
     Dosage: SECOND COURSE: 17/MAY/2016, 3RD COURSE: 07/JUN/2016, 4TH COURSE: 28/JUN/2016, 5TH COURSE ON 19/JUL/2
     Route: 042
     Dates: start: 20160425, end: 20160809
  10. CORTANCYL [Suspect]
     Active Substance: PREDNISONE
     Indication: NON-HODGKIN^S LYMPHOMA STAGE IV
     Dosage: SECOND COURSE: 17/MAY/2016, 3RD COURSE: 07/JUN/2016, 4TH COURSE: 28/JUN/2016, 5TH COURSE ON 19/JUL/2
     Route: 048
     Dates: start: 20160425, end: 20160809
  11. METHYLPREDNISOLONE MYLAN [Concomitant]
     Active Substance: METHYLPREDNISOLONE
     Indication: PREMEDICATION
     Route: 042
  12. POLARAMINE [Concomitant]
     Active Substance: DEXCHLORPHENIRAMINE MALEATE
     Indication: PREMEDICATION
     Route: 042
  13. MESNA. [Concomitant]
     Active Substance: MESNA
     Indication: PREMEDICATION
     Route: 042

REACTIONS (5)
  - Ejection fraction decreased [Recovering/Resolving]
  - Tachyarrhythmia [Recovered/Resolved]
  - Cardiac failure [Recovering/Resolving]
  - Mitral valve incompetence [Recovering/Resolving]
  - Pulmonary hypertension [Recovering/Resolving]

NARRATIVE: CASE EVENT DATE: 20161122
